FAERS Safety Report 23359551 (Version 2)
Quarter: 2024Q1

REPORT INFORMATION
  Report Type: Spontaneous
  Country: VN (occurrence: VN)
  Receive Date: 20240103
  Receipt Date: 20240328
  Transmission Date: 20240410
  Serious: Yes (Other)
  Sender: FDA-Public Use
  Company Number: VN-ROCHE-3480693

PATIENT
  Age: 38 Year
  Sex: Male
  Weight: 54 kg

DRUGS (5)
  1. CAPECITABINE [Suspect]
     Active Substance: CAPECITABINE
     Indication: Colorectal cancer
     Dates: start: 202305
  2. AVASTIN [Suspect]
     Active Substance: BEVACIZUMAB
     Indication: Colorectal cancer
     Dates: start: 202210
  3. AVASTIN [Suspect]
     Active Substance: BEVACIZUMAB
     Indication: Colorectal cancer
     Dosage: FOR ADDITIONAL 4 CYCLES
     Dates: start: 202302
  4. FLUOROURACIL\LEUCOVORIN CALCIUM\OXALIPLATIN [Suspect]
     Active Substance: FLUOROURACIL\LEUCOVORIN CALCIUM\OXALIPLATIN
     Indication: Colorectal cancer
     Dosage: ON AN UNKNOWN DATE IN /FEB/2023 FOLFOX+ BEVACIZUMAB FOR ADDITIONAL 4 CYCLES
     Dates: start: 202210
  5. FLUOROURACIL\LEUCOVORIN CALCIUM\OXALIPLATIN [Suspect]
     Active Substance: FLUOROURACIL\LEUCOVORIN CALCIUM\OXALIPLATIN
     Indication: Colorectal cancer
     Dosage: FOR ADDITIONAL 4 CYCLES
     Dates: start: 202302

REACTIONS (10)
  - Neurotoxicity [Unknown]
  - Peripheral swelling [Unknown]
  - Metastases to liver [Unknown]
  - Hypoaesthesia [Unknown]
  - Therapy partial responder [Unknown]
  - Fatigue [Unknown]
  - Defaecation disorder [Recovering/Resolving]
  - Alopecia [Unknown]
  - Hypoaesthesia [Unknown]
  - Dyschezia [Unknown]
